FAERS Safety Report 6569657-3 (Version None)
Quarter: 2010Q1

REPORT INFORMATION
  Report Type: 
  Country: None (occurrence: None)
  Receive Date: 20100204
  Receipt Date: 20100121
  Transmission Date: 20100710
  Serious: Yes (Other)
  Sender: FDA-Public Use
  Company Number: PHHY2010US03365

PATIENT
  Sex: Male

DRUGS (8)
  1. GLEEVEC [Suspect]
     Indication: MYELOPROLIFERATIVE DISORDER
     Dosage: 300 MG, QD
     Route: 048
     Dates: end: 20091101
  2. GLEEVEC [Suspect]
     Dosage: 200 MG DAILY
  3. ZYRTEC [Concomitant]
     Indication: HYPERSENSITIVITY
     Dosage: 10 MG, QD
     Dates: start: 20090817
  4. DIGOXIN [Concomitant]
     Indication: CARDIAC DISORDER
     Dosage: 0.25 QD
     Dates: start: 20090817
  5. SYNTHROID [Concomitant]
     Indication: THYROID DISORDER
     Dosage: 25 UG, QD
     Dates: start: 20090817
  6. GLYBURIDE [Concomitant]
     Indication: DIABETES MELLITUS
     Dosage: 1.25 MG, QD
     Dates: start: 20090817
  7. TOPROL-XL [Concomitant]
     Indication: BLOOD PRESSURE
     Dosage: 25 MG, QD
     Dates: start: 20090817
  8. HYDREA [Concomitant]
     Indication: EOSINOPHILIA
     Dosage: UNK
     Dates: start: 20100119

REACTIONS (4)
  - BLOOD GLUCOSE INCREASED [None]
  - CARDIOMEGALY [None]
  - EJECTION FRACTION DECREASED [None]
  - RASH [None]
